FAERS Safety Report 4388981-6 (Version None)
Quarter: 2004Q3

REPORT INFORMATION
  Report Type: 
  Country: None (occurrence: None)
  Receive Date: 20040702
  Receipt Date: 20040621
  Transmission Date: 20050211
  Serious: Yes (Other)
  Sender: FDA-Public Use
  Company Number: PHEH2004US06941

PATIENT

DRUGS (1)
  1. MIACALCIN [Suspect]

REACTIONS (2)
  - SPINAL FRACTURE [None]
  - THERAPEUTIC PROCEDURE [None]
